FAERS Safety Report 8769781 (Version 1)
Quarter: 2012Q4

REPORT INFORMATION
  Report Type: 
  Country: DE (occurrence: DE)
  Receive Date: 20120906
  Receipt Date: 20120906
  Transmission Date: 20130627
  Serious: Yes (Congenital Anomaly)
  Sender: FDA-Public Use
  Company Number: DE-TEVA-355930GER

PATIENT
  Sex: Male

DRUGS (2)
  1. SUMATRIPTAN [Suspect]
     Route: 064
  2. FOLIO FORTE [Concomitant]
     Route: 064

REACTIONS (1)
  - Renal aplasia [Unknown]
